FAERS Safety Report 15986694 (Version 1)
Quarter: 2019Q1

REPORT INFORMATION
  Report Type: Report from Study
  Country: US (occurrence: US)
  Receive Date: 20190220
  Receipt Date: 20190220
  Transmission Date: 20190418
  Serious: Yes (Other)
  Sender: FDA-Public Use
  Company Number: US-ACTELION-A-US2017-160557

PATIENT
  Age: 65 Year
  Sex: Female

DRUGS (1)
  1. TRACLEER [Suspect]
     Active Substance: BOSENTAN
     Indication: PRODUCT USED FOR UNKNOWN INDICATION
     Dosage: 125 MG, BID
     Route: 048
     Dates: start: 20161223, end: 201807

REACTIONS (4)
  - Toe amputation [Unknown]
  - Treatment noncompliance [Not Recovered/Not Resolved]
  - Finger amputation [Unknown]
  - Off label use [Unknown]

NARRATIVE: CASE EVENT DATE: 20171003
